FAERS Safety Report 9366992 (Version 1)
Quarter: 2013Q2

REPORT INFORMATION
  Report Type: Spontaneous
  Country: DE (occurrence: DE)
  Receive Date: 20130625
  Receipt Date: 20130625
  Transmission Date: 20140414
  Serious: Yes (Other)
  Sender: FDA-Public Use
  Company Number: DE-GLAXOSMITHKLINE-D0080153A

PATIENT
  Age: 4 Week
  Sex: Female

DRUGS (1)
  1. LAMOTRIGINE [Suspect]
     Indication: EPILEPSY
     Dosage: 400MG PER DAY
     Route: 063

REACTIONS (3)
  - Failure to thrive [Recovered/Resolved]
  - Somnolence [Recovered/Resolved]
  - Exposure during breast feeding [Unknown]
